FAERS Safety Report 8129941-9 (Version None)
Quarter: 2012Q1

REPORT INFORMATION
  Report Type: 
  Country: None (occurrence: None)
  Receive Date: 20120210
  Receipt Date: 20120206
  Transmission Date: 20120608
  Serious: Yes (Hospitalization, Other)
  Sender: FDA-Public Use
  Company Number: US-PFIZER INC-2011279850

PATIENT
  Sex: Male
  Weight: 99.773 kg

DRUGS (4)
  1. PROTONIX [Concomitant]
  2. GEODON [Suspect]
     Indication: BIPOLAR DISORDER
     Dosage: 60 MG, 2X/DAY
     Route: 048
     Dates: start: 20111112, end: 20111114
  3. COGENTIN [Concomitant]
  4. LISINOPRIL [Concomitant]

REACTIONS (12)
  - THROAT TIGHTNESS [None]
  - INSOMNIA [None]
  - HYPERTENSION [None]
  - FEELING ABNORMAL [None]
  - SHOCK [None]
  - DYSPNOEA [None]
  - CONVULSION [None]
  - PROTRUSION TONGUE [None]
  - HYPERSENSITIVITY [None]
  - SWOLLEN TONGUE [None]
  - BURNING SENSATION [None]
  - HEART RATE INCREASED [None]
